FAERS Safety Report 23118486 (Version 1)
Quarter: 2023Q4

REPORT INFORMATION
  Report Type: Spontaneous
  Country: US (occurrence: US)
  Receive Date: 20231028
  Receipt Date: 20231028
  Transmission Date: 20240110
  Serious: No
  Sender: FDA-Public Use
  Company Number: US-GSK-US2023146060

PATIENT
  Age: 71 Year
  Sex: Male

DRUGS (1)
  1. MOMELOTINIB [Suspect]
     Active Substance: MOMELOTINIB
     Indication: Myelofibrosis
     Dosage: UNK
     Route: 048
     Dates: start: 20230610

REACTIONS (3)
  - Peripheral coldness [Unknown]
  - Paraesthesia [Recovered/Resolved]
  - Adverse drug reaction [Unknown]
